FAERS Safety Report 8004078-8 (Version None)
Quarter: 2011Q4

REPORT INFORMATION
  Report Type: 
  Country: None (occurrence: None)
  Receive Date: 20111222
  Receipt Date: 20111213
  Transmission Date: 20120403
  Serious: Yes (Other)
  Sender: FDA-Public Use
  Company Number: FR-ASTRAZENECA-2011SE76223

PATIENT
  Age: 25 Year
  Sex: Male

DRUGS (16)
  1. MYOLASTAN [Concomitant]
  2. ATHYMIL [Concomitant]
  3. NEXIUM [Suspect]
     Route: 048
     Dates: start: 20110702, end: 20110707
  4. EDUCTYL [Concomitant]
  5. TIENAM [Concomitant]
     Indication: SEPSIS
     Dates: end: 20110703
  6. ROCEPHIN [Suspect]
     Route: 042
     Dates: start: 20110704, end: 20110704
  7. DITROPAN [Concomitant]
  8. CLAFORAN [Suspect]
     Route: 042
     Dates: start: 20110705, end: 20110708
  9. CEFEPIME HYDROCHLORIDE [Suspect]
     Route: 042
     Dates: start: 20110704, end: 20110704
  10. DANTRIUM [Concomitant]
  11. GUTRON [Concomitant]
  12. MOTILIUM [Concomitant]
  13. XANAX [Concomitant]
  14. ACETAMINOPHEN [Concomitant]
  15. ZOLPIDEM [Concomitant]
  16. LIORESAL [Concomitant]

REACTIONS (2)
  - MACULE [None]
  - AGRANULOCYTOSIS [None]
